FAERS Safety Report 4592697-0 (Version None)
Quarter: 2005Q1

REPORT INFORMATION
  Report Type: 
  Country: None (occurrence: None)
  Receive Date: 20050222
  Receipt Date: 20050208
  Transmission Date: 20050727
  Serious: Yes (Death, Other)
  Sender: FDA-Public Use
  Company Number: 2005032020

PATIENT
  Age: 40 Year
  Sex: Male

DRUGS (7)
  1. VORICONAZOLE                               (VORICONAZOLE) [Suspect]
     Indication: BRONCHOPULMONARY ASPERGILLOSIS
     Dosage: ORAL
     Route: 048
     Dates: start: 20030501, end: 20030101
  2. LAMIVUDINE [Concomitant]
  3. STAVUDINE [Concomitant]
  4. LOPINAVIR [Concomitant]
  5. RITONAVIR [Concomitant]
  6. VALACYCLOVIR HCL [Concomitant]
  7. BACTRIM [Concomitant]

REACTIONS (9)
  - CEREBRAL ASPERGILLOSIS [None]
  - CONVULSION [None]
  - DYSPHASIA [None]
  - GENERAL PHYSICAL HEALTH DETERIORATION [None]
  - IMMUNE RECONSTITUTION SYNDROME [None]
  - NUCLEAR MAGNETIC RESONANCE IMAGING BRAIN ABNORMAL [None]
  - REFUSAL OF TREATMENT BY PATIENT [None]
  - THERAPEUTIC RESPONSE DECREASED [None]
  - THERAPY NON-RESPONDER [None]
